FAERS Safety Report 8603169-8 (Version None)
Quarter: 2012Q3

REPORT INFORMATION
  Report Type: 
  Country: None (occurrence: None)
  Receive Date: 20120817
  Receipt Date: 19951012
  Transmission Date: 20120928
  Serious: Yes (Other)
  Sender: FDA-Public Use
  Company Number: US-ROCHE-1101296

PATIENT
  Sex: Female

DRUGS (5)
  1. HEPARIN [Concomitant]
  2. ACTIVASE [Suspect]
  3. ACTIVASE [Suspect]
  4. ACTIVASE [Suspect]
     Indication: MYOCARDIAL INFARCTION
  5. NITROGLYCERIN [Concomitant]

REACTIONS (2)
  - OEDEMA PERIPHERAL [None]
  - CHEST PAIN [None]
